FAERS Safety Report 15978751 (Version 1)
Quarter: 2019Q1

REPORT INFORMATION
  Report Type: Spontaneous
  Country: IN (occurrence: IN)
  Receive Date: 20190219
  Receipt Date: 20190219
  Transmission Date: 20190418
  Serious: Yes (Other)
  Sender: FDA-Public Use
  Company Number: IN-VIIV HEALTHCARE LIMITED-IN2019GSK028835

PATIENT
  Age: 72 Year
  Sex: Male

DRUGS (2)
  1. ABACAVIR SULFATE + LAMIVUDINE [Suspect]
     Active Substance: ABACAVIR SULFATE\LAMIVUDINE
     Indication: HIV INFECTION
     Dosage: 300 MG, UNK
  2. EFAVIRENZ. [Concomitant]
     Active Substance: EFAVIRENZ
     Indication: HIV INFECTION
     Dosage: 600 MG, UNK

REACTIONS (5)
  - Femoral neck fracture [Unknown]
  - Arthralgia [Unknown]
  - Movement disorder [Recovered/Resolved]
  - Insomnia [Unknown]
  - Hypokinesia [Recovered/Resolved]
